FAERS Safety Report 8681310 (Version 2)
Quarter: 2013Q4

REPORT INFORMATION
  Report Type: Spontaneous
  Country: JP (occurrence: JP)
  Receive Date: 20120725
  Receipt Date: 20131107
  Transmission Date: 20140711
  Serious: Yes (Hospitalization)
  Sender: FDA-Public Use
  Company Number: JP-009507513-1207JPN004832

PATIENT
  Age: 64 Year
  Sex: Male

DRUGS (4)
  1. PEGINTRON [Suspect]
     Indication: CHRONIC HEPATITIS C
     Dosage: 80 MICROGRAM, QW
     Dates: start: 201201
  2. REBETOL [Suspect]
     Indication: CHRONIC HEPATITIS C
     Dosage: 200 MG, BID
     Dates: start: 201201
  3. TELAPREVIR [Suspect]
     Indication: CHRONIC HEPATITIS C
     Dosage: 2250 MG, UNK
     Dates: start: 201201
  4. TELAPREVIR [Suspect]
     Dosage: 1500 UNK, UNK
     Dates: start: 2012

REACTIONS (3)
  - Renal disorder [Unknown]
  - Hyperuricaemia [Unknown]
  - Rash [Recovering/Resolving]
